FAERS Safety Report 5383757-5 (Version None)
Quarter: 2007Q3

REPORT INFORMATION
  Report Type: 
  Country: None (occurrence: None)
  Receive Date: 20070711
  Receipt Date: 20070706
  Transmission Date: 20080115
  Serious: Yes (Death, Other)
  Sender: FDA-Public Use
  Company Number: PHMT2007CA00963

PATIENT
  Age: 60 Year
  Sex: Female

DRUGS (1)
  1. ZELNORM [Suspect]
     Indication: IRRITABLE BOWEL SYNDROME
     Dosage: UNCERTAIN OF DOSE , LIKELY 14 TABS TAKEN
     Route: 048
     Dates: start: 20060728, end: 20060801

REACTIONS (8)
  - ABDOMINAL PAIN UPPER [None]
  - ARRHYTHMIA [None]
  - CARDIAC DEATH [None]
  - CORONARY ARTERY DISEASE [None]
  - FALL [None]
  - HEADACHE [None]
  - MYOCARDIAL FIBROSIS [None]
  - THYROID ATROPHY [None]
